FAERS Safety Report 4527237-5 (Version None)
Quarter: 2004Q4

REPORT INFORMATION
  Report Type: 
  Country: None (occurrence: None)
  Receive Date: 20041130
  Receipt Date: 20040803
  Transmission Date: 20050328
  Serious: No
  Sender: FDA-Public Use
  Company Number: FABR-10710

PATIENT
  Age: 52 Year
  Sex: Male
  Weight: 84 kg

DRUGS (6)
  1. FABRAZYME [Suspect]
     Indication: FABRY'S DISEASE
     Dosage: 85 MG Q2WKS IV
     Route: 042
     Dates: start: 20040201
  2. ZESTRIL [Concomitant]
  3. FLONASE [Concomitant]
  4. ZYRTEC [Concomitant]
  5. ASPIRIN [Concomitant]
  6. ATARAX [Concomitant]

REACTIONS (5)
  - COUGH [None]
  - CYCLIC NEUTROPENIA [None]
  - NASOPHARYNGITIS [None]
  - PHARYNGOLARYNGEAL PAIN [None]
  - WHEEZING [None]
